FAERS Safety Report 7415654-5 (Version None)
Quarter: 2011Q1

REPORT INFORMATION
  Report Type: 
  Country: None (occurrence: None)
  Receive Date: 20110317
  Receipt Date: 20110304
  Transmission Date: 20110831
  Serious: Yes (Life-Threatening, Hospitalization)
  Sender: FDA-Public Use
  Company Number: 11-110

PATIENT
  Age: 69 Year
  Sex: Male

DRUGS (8)
  1. ASPIRIN [Concomitant]
  2. BENDROFLUMETHIAZIDE [Concomitant]
  3. IBUPROFEN [Suspect]
     Indication: TOOTHACHE
     Dosage: ORAL
     Route: 048
     Dates: start: 20110121, end: 20110126
  4. METOCLOPRAMIDE [Concomitant]
  5. AMLODIPINE [Concomitant]
  6. TIMOLOL [Concomitant]
  7. SIMVASTATIN [Concomitant]
  8. METFORMIN [Suspect]
     Dosage: 500 MG 3X/DAY, ORAL
     Route: 048
     Dates: start: 20110105, end: 20110126

REACTIONS (5)
  - HYPONATRAEMIA [None]
  - HYPERKALAEMIA [None]
  - RENAL FAILURE ACUTE [None]
  - DIARRHOEA [None]
  - VOMITING [None]
